FAERS Safety Report 10224422 (Version 1)
Quarter: 2014Q2

REPORT INFORMATION
  Report Type: Spontaneous
  Country: US (occurrence: US)
  Receive Date: 20140609
  Receipt Date: 20140609
  Transmission Date: 20141212
  Serious: No
  Sender: FDA-Public Use
  Company Number: US-PFIZER INC-2014157317

PATIENT
  Age: 56 Year
  Sex: Female
  Weight: 81.63 kg

DRUGS (7)
  1. LYRICA [Suspect]
     Indication: FIBROMYALGIA
     Dosage: 50 MG, 3X/DAY
     Dates: start: 2002, end: 201405
  2. IBUPROFEN [Concomitant]
     Dosage: 800 MG, 3X/DAY
  3. METHADONE [Concomitant]
     Dosage: 20 MG, EVERY 8 HOURS
  4. BACLOFEN [Concomitant]
     Dosage: 10 MG, 3X/DAY
  5. OXYCODONE [Concomitant]
     Dosage: 15 MG, EVERY 4 HRS
  6. VALIUM [Concomitant]
     Dosage: 10 MG, 4X/DAY
  7. MICARDIS HCT [Concomitant]
     Dosage: [HYDROCHLOROTHIAZIDE 25MG/ TELMISARTAN 80MG], DAILY

REACTIONS (1)
  - Pain [Unknown]
